FAERS Safety Report 7541496-6 (Version None)
Quarter: 2011Q2

REPORT INFORMATION
  Report Type: 
  Country: None (occurrence: None)
  Receive Date: 20110613
  Receipt Date: 20110603
  Transmission Date: 20111010
  Serious: No
  Sender: FDA-Public Use
  Company Number: US-BIOGENIDEC-2011BI020846

PATIENT
  Age: 30 Year
  Sex: Female

DRUGS (3)
  1. GILENYA [Concomitant]
  2. TYSABRI [Concomitant]
     Indication: MULTIPLE SCLEROSIS
     Route: 042
     Dates: start: 20100612, end: 20100710
  3. AVONEX [Suspect]
     Indication: MULTIPLE SCLEROSIS
     Route: 030

REACTIONS (3)
  - HYPOAESTHESIA [None]
  - LOSS OF CONSCIOUSNESS [None]
  - HEART RATE DECREASED [None]
